FAERS Safety Report 14165616 (Version 3)
Quarter: 2017Q4

REPORT INFORMATION
  Report Type: Spontaneous
  Country: US (occurrence: US)
  Receive Date: 20171107
  Receipt Date: 20171228
  Transmission Date: 20180321
  Serious: Yes (Hospitalization, Other)
  Sender: FDA-Public Use
  Company Number: US-PFIZER INC-2017473998

PATIENT
  Age: 60 Year
  Sex: Male

DRUGS (3)
  1. RITUXIMAB. [Suspect]
     Active Substance: RITUXIMAB
     Indication: LYMPHOMA
     Dosage: UNK UNK, CYCLIC (6 CYCLES)
     Dates: end: 20161021
  2. BENDAMUSTINE HYDROCHLORIDE. [Suspect]
     Active Substance: BENDAMUSTINE HYDROCHLORIDE
     Indication: LYMPHOMA
     Dosage: UNK, CYCLIC (6 CYCLES)
     Dates: end: 20161021
  3. RITUXIMAB. [Suspect]
     Active Substance: RITUXIMAB
     Dosage: UNK, CYCLIC(MAINTENANCE THERAPY)
     Dates: end: 201705

REACTIONS (2)
  - Still^s disease [Unknown]
  - Cytopenia [Unknown]

NARRATIVE: CASE EVENT DATE: 201703
